FAERS Safety Report 8322143-2 (Version None)
Quarter: 2012Q2

REPORT INFORMATION
  Report Type: 
  Country: None (occurrence: None)
  Receive Date: 20120426
  Receipt Date: 20120418
  Transmission Date: 20120825
  Serious: Yes (Other)
  Sender: FDA-Public Use
  Company Number: 2012SP020558

PATIENT
  Age: 67 Year
  Sex: Female
  Weight: 53 kg

DRUGS (13)
  1. PEG-INTRON [Suspect]
     Indication: HEPATITIS C
     Dosage: 1.5 MCG/KG;QW;SC ; 1.3 MCG/KG;QW;SC
     Route: 058
     Dates: start: 20120217, end: 20120329
  2. PEG-INTRON [Suspect]
     Indication: HEPATITIS C
     Dosage: 1.5 MCG/KG;QW;SC ; 1.3 MCG/KG;QW;SC
     Route: 058
     Dates: start: 20120330
  3. DIOVAN [Concomitant]
  4. AMLODIPINE [Concomitant]
  5. PROCHLORPERAZINE [Concomitant]
  6. REBETOL [Suspect]
     Indication: HEPATITIS C
     Dosage: 600 MG;QD;PO ; 400 MG;QD;PO ; 200 MG;QD;PO
     Route: 048
     Dates: start: 20120217, end: 20120223
  7. REBETOL [Suspect]
     Indication: HEPATITIS C
     Dosage: 600 MG;QD;PO ; 400 MG;QD;PO ; 200 MG;QD;PO
     Route: 048
     Dates: start: 20120224, end: 20120315
  8. REBETOL [Suspect]
     Indication: HEPATITIS C
     Dosage: 600 MG;QD;PO ; 400 MG;QD;PO ; 200 MG;QD;PO
     Route: 048
     Dates: start: 20120316
  9. URSO 250 [Concomitant]
  10. OTHER HORMONES [Concomitant]
  11. TELAVIC [Suspect]
     Indication: HEPATITIS C
     Dosage: 2250 MG;QD;PO ; 1500 MG;QD;PO ; 750 MG;QD;PO
     Route: 048
     Dates: start: 20120217, end: 20120223
  12. TELAVIC [Suspect]
     Indication: HEPATITIS C
     Dosage: 2250 MG;QD;PO ; 1500 MG;QD;PO ; 750 MG;QD;PO
     Route: 048
     Dates: start: 20120224, end: 20120322
  13. TELAVIC [Suspect]
     Indication: HEPATITIS C
     Dosage: 2250 MG;QD;PO ; 1500 MG;QD;PO ; 750 MG;QD;PO
     Route: 048
     Dates: start: 20120323

REACTIONS (4)
  - NAUSEA [None]
  - DECREASED APPETITE [None]
  - RENAL IMPAIRMENT [None]
  - HYPERURICAEMIA [None]
